FAERS Safety Report 5375967-8 (Version None)
Quarter: 2007Q3

REPORT INFORMATION
  Report Type: 
  Country: None (occurrence: None)
  Receive Date: 20070702
  Receipt Date: 20070620
  Transmission Date: 20080115
  Serious: Yes (Hospitalization)
  Sender: FDA-Public Use
  Company Number: FR-JNJFOC-20070606641

PATIENT
  Age: 72 Year
  Sex: Female

DRUGS (3)
  1. ACETAMINOPHEN AND TRAMADOL HCL [Suspect]
     Indication: PROCEDURAL PAIN
     Route: 048
  2. COZAAR [Concomitant]
     Route: 065
  3. ANTIHYPERTENSIVES [Concomitant]
     Route: 065

REACTIONS (4)
  - ANGINA PECTORIS [None]
  - FORMICATION [None]
  - HEADACHE [None]
  - TREMOR [None]
